FAERS Safety Report 7984522-2 (Version None)
Quarter: 2011Q4

REPORT INFORMATION
  Report Type: 
  Country: None (occurrence: None)
  Receive Date: 20111216
  Receipt Date: 20111206
  Transmission Date: 20120403
  Serious: Yes (Life-Threatening, Hospitalization, Other)
  Sender: FDA-Public Use
  Company Number: US-JNJFOC-20111004542

PATIENT
  Sex: Female
  Weight: 115 kg

DRUGS (4)
  1. AZULFIDINE [Concomitant]
     Indication: CROHN'S DISEASE
     Route: 065
     Dates: start: 20110922
  2. SOLU-MEDROL [Concomitant]
     Indication: CROHN'S DISEASE
     Route: 065
     Dates: start: 20110922
  3. REMICADE [Suspect]
     Indication: CROHN'S DISEASE
     Dosage: HAS RECEIVED ONE DOSE OF INFLIXIMAB,RECOMBINANT
     Route: 042
     Dates: start: 20110930
  4. PREDNISONE [Concomitant]
     Indication: CROHN'S DISEASE
     Dates: start: 20110709

REACTIONS (1)
  - CEREBRAL HAEMORRHAGE [None]
